FAERS Safety Report 17552265 (Version 2)
Quarter: 2020Q2

REPORT INFORMATION
  Report Type: Spontaneous
  Country: CH (occurrence: CH)
  Receive Date: 20200317
  Receipt Date: 20200512
  Transmission Date: 20200713
  Serious: Yes (Life-Threatening, Other)
  Sender: FDA-Public Use
  Company Number: CH-009507513-2003CHE005669

PATIENT
  Sex: Female
  Weight: 54 kg

DRUGS (4)
  1. IMPLANON NXT [Suspect]
     Active Substance: ETONOGESTREL
     Dosage: IMPLANT
     Dates: start: 20191129, end: 20200128
  2. TEMESTA [LORAZEPAM] [Suspect]
     Active Substance: LORAZEPAM
     Dosage: 1 MILLIGRAM, UNK; INDICATION: EMERGENCY RESERVE
  3. PRAZINE [PROMAZINE HYDROCHLORIDE] [Suspect]
     Active Substance: PROMAZINE HYDROCHLORIDE
     Dosage: 25 MG, UNK; INDICATION: EMERGENCY RESERVE
  4. VENLAFAXINE HYDROCHLORIDE. [Suspect]
     Active Substance: VENLAFAXINE HYDROCHLORIDE
     Indication: PSYCHIATRIC SYMPTOM
     Dosage: 375 MILLIGRAM, UNK

REACTIONS (6)
  - Suicidal behaviour [Unknown]
  - Pain [Recovered/Resolved]
  - Menstrual disorder [Recovered/Resolved]
  - Suicidal ideation [Recovered/Resolved]
  - Cyst [Recovered/Resolved]
  - Mental disorder [Unknown]

NARRATIVE: CASE EVENT DATE: 20191129
